FAERS Safety Report 22231537 (Version 8)
Quarter: 2023Q2

REPORT INFORMATION
  Report Type: Spontaneous
  Country: PL (occurrence: None)
  Receive Date: 20230420
  Receipt Date: 20230614
  Transmission Date: 20230722
  Serious: Yes (Other)
  Sender: FDA-Public Use
  Company Number: PL-ROCHE-3332830

PATIENT
  Age: 46 Year
  Sex: Female

DRUGS (2)
  1. MABTHERA [Suspect]
     Active Substance: RITUXIMAB
     Indication: Myasthenia gravis
     Dosage: TREATMENT STARTED IN THE SPRING OF 2018, ENDED IN THE AUTUMN OF 2018
     Route: 042
     Dates: start: 2018, end: 2018
  2. CYCLOPHOSPHAMIDE [Suspect]
     Active Substance: CYCLOPHOSPHAMIDE
     Indication: Myasthenia gravis
     Route: 065

REACTIONS (6)
  - Off label use [Unknown]
  - Myasthenia gravis [Not Recovered/Not Resolved]
  - Fatigue [Unknown]
  - Asthenia [Unknown]
  - Muscular weakness [Unknown]
  - Hair disorder [Unknown]

NARRATIVE: CASE EVENT DATE: 20181001
